FAERS Safety Report 4397714-9 (Version None)
Quarter: 2004Q3

REPORT INFORMATION
  Report Type: 
  Country: None (occurrence: None)
  Receive Date: 20040713
  Receipt Date: 20040706
  Transmission Date: 20050211
  Serious: Yes (Hospitalization, Other)
  Sender: FDA-Public Use
  Company Number: US-JNJFOC-20040505612

PATIENT
  Age: 28 Year
  Sex: Female
  Weight: 93.8946 kg

DRUGS (3)
  1. LEVAQUIN [Suspect]
     Indication: URINARY TRACT INFECTION
     Dosage: 500 MG, 1 IN 1 DAY, ORAL
     Route: 048
     Dates: start: 20030312
  2. EFFEXOR [Concomitant]
  3. PHENERGAN [Concomitant]

REACTIONS (13)
  - BLOOD PRESSURE INCREASED [None]
  - DISEASE RECURRENCE [None]
  - DRUG TOXICITY [None]
  - HYPERREFLEXIA [None]
  - HYPERSENSITIVITY [None]
  - MYCOPLASMA SEROLOGY [None]
  - NEPHRITIS INTERSTITIAL [None]
  - OPTIC NEURITIS [None]
  - PAPILLOEDEMA [None]
  - PUPIL FIXED [None]
  - RENAL FAILURE ACUTE [None]
  - SWELLING FACE [None]
  - URINARY TRACT INFECTION [None]
